FAERS Safety Report 4714282-X (Version None)
Quarter: 2005Q2

REPORT INFORMATION
  Report Type: 
  Country: None (occurrence: None)
  Receive Date: 20050630
  Receipt Date: 20041105
  Transmission Date: 20051028
  Serious: Yes (Other)
  Sender: FDA-Public Use
  Company Number: 385724

PATIENT
  Age: 53 Year
  Sex: Female
  Weight: 58.5 kg

DRUGS (5)
  1. KLONOPIN [Suspect]
     Indication: ANXIETY
     Dosage: 8 MG DAILY ORAL
     Route: 048
     Dates: start: 20020615
  2. ABILIFY [Suspect]
     Indication: BIPOLAR DISORDER
     Dosage: 5 MG DAILY ORAL
     Route: 048
  3. LEXAPRO [Suspect]
     Indication: BIPOLAR DISORDER
     Dosage: 15 MG DAILY ORAL
     Route: 048
     Dates: start: 20040415
  4. TRILEPTAL [Suspect]
     Dosage: 900 MG DAILY
  5. ZOCOR [Concomitant]

REACTIONS (1)
  - DEEP VEIN THROMBOSIS [None]
